FAERS Safety Report 23349130 (Version 1)
Quarter: 2023Q4

REPORT INFORMATION
  Report Type: Spontaneous
  Country: US (occurrence: US)
  Receive Date: 20231229
  Receipt Date: 20231229
  Transmission Date: 20240109
  Serious: No
  Sender: FDA-Public Use
  Company Number: US-009507513-2312USA008039

PATIENT
  Sex: Male

DRUGS (1)
  1. MOLNUPIRAVIR [Suspect]
     Active Substance: MOLNUPIRAVIR
     Dosage: ADMINISTERED VIA A TUBE NOT ORALLY

REACTIONS (3)
  - Ostomy bag placement [Unknown]
  - Product residue present [Unknown]
  - Product solubility abnormal [Unknown]
